FAERS Safety Report 16163655 (Version 1)
Quarter: 2019Q2

REPORT INFORMATION
  Report Type: Spontaneous
  Country: US (occurrence: US)
  Receive Date: 20190404
  Receipt Date: 20190404
  Transmission Date: 20190711
  Serious: No
  Sender: FDA-Public Use
  Company Number: None

PATIENT
  Age: 62 Year
  Sex: Male

DRUGS (2)
  1. AVASTIN [Concomitant]
     Active Substance: BEVACIZUMAB
     Dates: start: 20190404, end: 20190404
  2. BEVACIZUMAB. [Suspect]
     Active Substance: BEVACIZUMAB
     Indication: INJECTION
     Route: 031

REACTIONS (3)
  - Syringe issue [None]
  - Wrong technique in product usage process [None]
  - Product complaint [None]

NARRATIVE: CASE EVENT DATE: 20190404
